FAERS Safety Report 8799093 (Version 2)
Quarter: 2012Q4

REPORT INFORMATION
  Report Type: 
  Country: US (occurrence: US)
  Receive Date: 20120920
  Receipt Date: 20120927
  Transmission Date: 20130627
  Serious: Yes (Other)
  Sender: FDA-Public Use
  Company Number: US-009507513-1209USA002670

PATIENT
  Sex: Male

DRUGS (4)
  1. REBETOL [Suspect]
     Indication: HEPATITIS C
     Dosage: UNK
     Dates: start: 19980101, end: 19980212
  2. REBETOL [Suspect]
     Dosage: UNK
     Dates: start: 20120829
  3. PEGINTRON [Suspect]
     Indication: HEPATITIS C
     Dosage: UNK
     Dates: start: 19980101, end: 19980212
  4. PEGINTRON [Suspect]
     Dosage: UNK
     Dates: start: 20120829

REACTIONS (3)
  - Feeling abnormal [Unknown]
  - Suicidal ideation [Unknown]
  - Anxiety [Unknown]
